FAERS Safety Report 8547105-1 (Version None)
Quarter: 2012Q3

REPORT INFORMATION
  Report Type: 
  Country: None (occurrence: None)
  Receive Date: 20120727
  Receipt Date: 20120214
  Transmission Date: 20120928
  Serious: No
  Sender: FDA-Public Use
  Company Number: US-ASTRAZENECA-2012SE10431

PATIENT
  Age: 63 Year
  Sex: Female

DRUGS (5)
  1. SEROQUEL [Suspect]
     Indication: DEPRESSION
     Route: 048
  2. CLONAZEPAM [Concomitant]
  3. ZOLOFT [Concomitant]
  4. SEROQUEL [Suspect]
     Indication: ANXIETY
     Route: 048
  5. GENERIC WELLBUTRIN [Concomitant]

REACTIONS (5)
  - WITHDRAWAL SYNDROME [None]
  - MALAISE [None]
  - SOMNOLENCE [None]
  - DRUG DOSE OMISSION [None]
  - OFF LABEL USE [None]
